FAERS Safety Report 23497668 (Version 1)
Quarter: 2024Q1

REPORT INFORMATION
  Report Type: Spontaneous
  Country: US (occurrence: US)
  Receive Date: 20240208
  Receipt Date: 20240208
  Transmission Date: 20240410
  Serious: Yes (Hospitalization)
  Sender: FDA-Public Use
  Company Number: US-DRL-USA-LIT/USA/24/0001822

PATIENT
  Age: 27 Year
  Sex: Female

DRUGS (5)
  1. TOPIRAMATE [Suspect]
     Active Substance: TOPIRAMATE
     Indication: Status migrainosus
  2. VALPROATE [Suspect]
     Active Substance: VALPROIC ACID
     Indication: Status migrainosus
  3. PREDNISONE [Suspect]
     Active Substance: PREDNISONE
     Indication: Status migrainosus
  4. AMITRIPTYLINE [Suspect]
     Active Substance: AMITRIPTYLINE
     Indication: Status migrainosus
  5. ACETAZOLAMIDE [Concomitant]
     Active Substance: ACETAZOLAMIDE
     Indication: Idiopathic intracranial hypertension

REACTIONS (2)
  - Drug ineffective [Unknown]
  - Hepatic enzyme increased [Recovering/Resolving]
